FAERS Safety Report 13471180 (Version 6)
Quarter: 2017Q4

REPORT INFORMATION
  Report Type: Report from Study
  Country: BE (occurrence: BE)
  Receive Date: 20170424
  Receipt Date: 20171123
  Transmission Date: 20180320
  Serious: Yes (Life-Threatening, Hospitalization)
  Sender: FDA-Public Use
  Company Number: BE-ROCHE-1922271

PATIENT
  Age: 66 Year
  Sex: Male
  Weight: 86 kg

DRUGS (4)
  1. IMODIUM [Concomitant]
     Active Substance: LOPERAMIDE HYDROCHLORIDE
     Indication: DIARRHOEA
     Route: 048
     Dates: start: 20170103
  2. DOVOBET [Concomitant]
     Active Substance: BETAMETHASONE\CALCIPOTRIENE
     Indication: RASH MACULO-PAPULAR
     Route: 061
     Dates: start: 20170620
  3. COBIMETINIB. [Suspect]
     Active Substance: COBIMETINIB
     Indication: COLORECTAL ADENOCARCINOMA
     Dosage: MOST RECENT DOSE (80MG)  PRIOR TO AE ONSET: 06/APR/2017,
     Route: 048
     Dates: start: 20161222
  4. ATEZOLIZUMAB. [Suspect]
     Active Substance: ATEZOLIZUMAB
     Indication: COLORECTAL ADENOCARCINOMA
     Dosage: DATE OF MOST RECENT DOSE PRIOR TO AE ONSET: 16/MAR/2017 AT 12:42
     Route: 042
     Dates: start: 20161222

REACTIONS (1)
  - Pleural infection [Recovered/Resolved]

NARRATIVE: CASE EVENT DATE: 20170416
